FAERS Safety Report 10360456 (Version 2)
Quarter: 2015Q3

REPORT INFORMATION
  Report Type: Spontaneous
  Country: US (occurrence: US)
  Receive Date: 20140804
  Receipt Date: 20150723
  Transmission Date: 20151125
  Serious: Yes (Hospitalization, Other)
  Sender: FDA-Public Use
  Company Number: PHHY2014US091866

PATIENT
  Age: 47 Year
  Sex: Male

DRUGS (1)
  1. LOPRESSOR [Suspect]
     Active Substance: METOPROLOL TARTRATE
     Indication: HYPERTENSION
     Dosage: 10 G, UNK
     Route: 048

REACTIONS (18)
  - Suicide attempt [Unknown]
  - Coma [Recovering/Resolving]
  - Lactic acidosis [Recovered/Resolved]
  - Cardiotoxicity [Recovering/Resolving]
  - Cardiac arrest [Recovering/Resolving]
  - Motor dysfunction [Recovering/Resolving]
  - Transaminases increased [Recovered/Resolved]
  - Pulseless electrical activity [Recovering/Resolving]
  - Areflexia [Recovering/Resolving]
  - Pupillary reflex impaired [Recovering/Resolving]
  - Bradycardia [Recovering/Resolving]
  - Hypotension [Recovering/Resolving]
  - Condition aggravated [Unknown]
  - Loss of consciousness [Recovering/Resolving]
  - Hypokinesia [Recovering/Resolving]
  - Cough decreased [Recovering/Resolving]
  - Apnoeic attack [Recovering/Resolving]
  - Intentional overdose [Unknown]
